FAERS Safety Report 5385823-7 (Version None)
Quarter: 2007Q3

REPORT INFORMATION
  Report Type: 
  Country: None (occurrence: None)
  Receive Date: 20070712
  Receipt Date: 20070702
  Transmission Date: 20080115
  Serious: Yes (Hospitalization)
  Sender: FDA-Public Use
  Company Number: US-ELI_LILLY_AND_COMPANY-US200703004539

PATIENT
  Age: 62 Year
  Sex: Male
  Weight: 84.807 kg

DRUGS (10)
  1. SOMATROPIN [Suspect]
     Indication: GROWTH HORMONE DEFICIENCY
     Dosage: 0.07 MG, DAILY (1/D)
     Dates: start: 20070307
  2. SOMATROPIN [Suspect]
     Dosage: 0.07 MG, DAILY (1/D)
     Dates: start: 19980328, end: 20070305
  3. CORTEF [Concomitant]
     Indication: HYPOPITUITARISM
     Dates: start: 19860101
  4. SYNTHROID [Concomitant]
     Indication: HYPOTHYROIDISM
     Dates: start: 19860101
  5. TESTOSTERONE ENANTHATE [Concomitant]
     Indication: HYPOGONADISM
     Dates: start: 19860101, end: 20070305
  6. ANDROGEL [Concomitant]
     Indication: HYPOGONADISM
     Dates: start: 20070305
  7. PRAVACHOL [Concomitant]
     Indication: HYPERLIPIDAEMIA
     Dates: start: 20030101
  8. NIACIN [Concomitant]
     Indication: HYPERLIPIDAEMIA
     Dates: start: 20050101
  9. VIAGRA [Concomitant]
     Indication: ERECTILE DYSFUNCTION
     Dates: start: 20040101
  10. COZAAR [Concomitant]
     Indication: HYPERTENSION
     Dates: start: 20020101

REACTIONS (1)
  - PROSTATE CANCER [None]
